FAERS Safety Report 7207086-X (Version None)
Quarter: 2011Q1

REPORT INFORMATION
  Report Type: 
  Country: None (occurrence: None)
  Receive Date: 20110103
  Receipt Date: 20101221
  Transmission Date: 20110831
  Serious: Yes (Other)
  Sender: FDA-Public Use
  Company Number: B0691727A

PATIENT
  Sex: Female
  Weight: 66 kg

DRUGS (6)
  1. FLANID [Concomitant]
     Indication: TOOTH ABSCESS
     Dates: start: 20101123, end: 20101206
  2. PAZOPANIB [Suspect]
     Indication: DERMATOFIBROSARCOMA
     Dosage: 800MG PER DAY
     Route: 048
     Dates: start: 20100702, end: 20101217
  3. CACIT VIT D3 [Concomitant]
  4. MISSILOR [Concomitant]
     Indication: TOOTH ABSCESS
     Dates: start: 20101123, end: 20101206
  5. FLUDEX [Concomitant]
     Indication: HYPERTENSION
  6. AMLOR [Concomitant]
     Indication: HYPERTENSION
     Dates: start: 20101123

REACTIONS (3)
  - ALANINE AMINOTRANSFERASE INCREASED [None]
  - CELL DEATH [None]
  - BLOOD BILIRUBIN INCREASED [None]
